FAERS Safety Report 7879862-1 (Version None)
Quarter: 2011Q4

REPORT INFORMATION
  Report Type: 
  Country: None (occurrence: None)
  Receive Date: 20111101
  Receipt Date: 20111026
  Transmission Date: 20120403
  Serious: Yes (Death, Other)
  Sender: FDA-Public Use
  Company Number: DK-NAPPMUNDI-GBR-2011-0008919

PATIENT
  Age: 16 Year
  Sex: Male

DRUGS (1)
  1. OXYCONTIN 80 MG DEPOTTABLETTER [Suspect]
     Indication: PRODUCT USED FOR UNKNOWN INDICATION
     Dosage: 160 MG, UNK
     Route: 055

REACTIONS (3)
  - INTENTIONAL DRUG MISUSE [None]
  - ASPIRATION [None]
  - DRUG DIVERSION [None]
